FAERS Safety Report 14634467 (Version 2)
Quarter: 2018Q2

REPORT INFORMATION
  Report Type: Spontaneous
  Country: US (occurrence: US)
  Receive Date: 20180314
  Receipt Date: 20180425
  Transmission Date: 20180711
  Serious: Yes (Hospitalization, Other)
  Sender: FDA-Public Use
  Company Number: US-AMGEN-USASP2018031168

PATIENT
  Age: 76 Year
  Sex: Male

DRUGS (2)
  1. PEMBROLIZUMAB. [Concomitant]
     Active Substance: PEMBROLIZUMAB
     Indication: MALIGNANT MELANOMA STAGE IV
     Dosage: UNK UNK, Q3WK
     Dates: start: 201604
  2. XGEVA [Suspect]
     Active Substance: DENOSUMAB
     Indication: MALIGNANT MELANOMA STAGE IV
     Dosage: UNK, Q4WK
     Route: 065
     Dates: start: 201604, end: 201702

REACTIONS (2)
  - Exposed bone in jaw [Recovering/Resolving]
  - Subcutaneous abscess [Unknown]

NARRATIVE: CASE EVENT DATE: 20170628
